FAERS Safety Report 8082988-3 (Version None)
Quarter: 2012Q1

REPORT INFORMATION
  Report Type: 
  Country: None (occurrence: None)
  Receive Date: 20120127
  Receipt Date: 20110308
  Transmission Date: 20120608
  Serious: No
  Sender: FDA-Public Use
  Company Number: US-ABBOTT-11P-163-0710494-00

PATIENT
  Sex: Male

DRUGS (2)
  1. HUMIRA [Suspect]
     Indication: PSORIASIS
     Dosage: LOADING DOSE OF 80 MG
     Route: 058
     Dates: start: 20101201, end: 20101201
  2. HUMIRA [Suspect]
     Route: 058
     Dates: start: 20101201, end: 20110301

REACTIONS (7)
  - INJECTION SITE REACTION [None]
  - DRUG INEFFECTIVE [None]
  - INJECTION SITE ERYTHEMA [None]
  - INJECTION SITE PRURITUS [None]
  - PSORIASIS [None]
  - INJECTION SITE RASH [None]
  - INJECTION SITE PAPULE [None]
